FAERS Safety Report 7465978-0 (Version None)
Quarter: 2011Q2

REPORT INFORMATION
  Report Type: 
  Country: None (occurrence: None)
  Receive Date: 20110509
  Receipt Date: 20100603
  Transmission Date: 20111010
  Serious: Yes (Other)
  Sender: FDA-Public Use
  Company Number: US-ALEXION-A201000612

PATIENT
  Sex: Female

DRUGS (6)
  1. BENADRYL [Concomitant]
  2. TYLENOL (CAPLET) [Suspect]
  3. PERCOCET [Concomitant]
  4. SOLIRIS [Suspect]
     Indication: PAROXYSMAL NOCTURNAL HAEMOGLOBINURIA
     Dosage: 900 MG, Q2W
     Route: 042
     Dates: start: 20090924
  5. PROGRAF [Concomitant]
     Indication: PROPHYLAXIS AGAINST TRANSPLANT REJECTION
     Dosage: 3 MG, BID
     Route: 048
  6. COUMADIN [Concomitant]
     Indication: THROMBOSIS PROPHYLAXIS
     Dosage: 7.5 MG, QD
     Route: 048

REACTIONS (7)
  - ABDOMINAL PAIN LOWER [None]
  - MALAISE [None]
  - LIVER FUNCTION TEST ABNORMAL [None]
  - URTICARIA [None]
  - VOMITING [None]
  - PYREXIA [None]
  - HAEMOGLOBIN DECREASED [None]
